FAERS Safety Report 9715097 (Version 1)
Quarter: 2013Q4

REPORT INFORMATION
  Report Type: Spontaneous
  Country: US (occurrence: US)
  Receive Date: 20131126
  Receipt Date: 20131126
  Transmission Date: 20140711
  Serious: No
  Sender: FDA-Public Use
  Company Number: US-TEVA-445612USA

PATIENT
  Sex: Male
  Weight: 86.26 kg

DRUGS (3)
  1. PROAIR HFA [Suspect]
     Indication: PROPHYLAXIS
     Route: 055
  2. ADVAIR [Concomitant]
     Indication: CHRONIC OBSTRUCTIVE PULMONARY DISEASE
  3. ALBUTEROL [Concomitant]
     Indication: CHRONIC OBSTRUCTIVE PULMONARY DISEASE

REACTIONS (2)
  - Medication error [Recovered/Resolved]
  - Device malfunction [Unknown]
